FAERS Safety Report 22272514 (Version 2)
Quarter: 2023Q2

REPORT INFORMATION
  Report Type: Spontaneous
  Country: US (occurrence: US)
  Receive Date: 20230502
  Receipt Date: 20230505
  Transmission Date: 20230721
  Serious: Yes (Other)
  Sender: FDA-Public Use
  Company Number: US-SA-2023SA129858

PATIENT
  Age: 69 Year
  Sex: Male

DRUGS (2)
  1. TAXOTERE [Suspect]
     Active Substance: DOCETAXEL
     Indication: Prostate cancer metastatic
     Dosage: UNK, OVER TWO HOURS EVERY THREE WEEKS
     Route: 042
     Dates: start: 20230317
  2. ELIQUIS [Concomitant]
     Active Substance: APIXABAN

REACTIONS (8)
  - Tunnel vision [Recovered/Resolved]
  - Vision blurred [Recovered/Resolved]
  - Malaise [Recovered/Resolved]
  - Rash macular [Recovered/Resolved]
  - Influenza like illness [Unknown]
  - Skin depigmentation [Recovered/Resolved]
  - Chills [Recovered/Resolved]
  - Erythema [Recovered/Resolved]

NARRATIVE: CASE EVENT DATE: 20230319
